FAERS Safety Report 18582331 (Version 1)
Quarter: 2020Q4

REPORT INFORMATION
  Report Type: Spontaneous
  Country: NL (occurrence: NL)
  Receive Date: 20201205
  Receipt Date: 20201205
  Transmission Date: 20210114
  Serious: Yes (Other)
  Sender: FDA-Public Use
  Company Number: NL-AUROBINDO-AUR-APL-2017-14384

PATIENT
  Age: 12 Year
  Sex: Male

DRUGS (2)
  1. DEXAMETHASON [Suspect]
     Active Substance: DEXAMETHASONE
     Indication: PRODUCT USED FOR UNKNOWN INDICATION
     Dosage: 6 MILLIGRAM/SQ. METER, ONCE A DAY
     Route: 048
  2. PREDNISOLONE. [Suspect]
     Active Substance: PREDNISOLONE
     Indication: PRODUCT USED FOR UNKNOWN INDICATION
     Dosage: 60 MILLIGRAM/SQ. METER, ONCE A DAY FOUR WEEKS
     Route: 065

REACTIONS (3)
  - Dizziness [Recovered/Resolved]
  - Adrenal insufficiency [Recovered/Resolved]
  - Muscular weakness [Recovered/Resolved]
